FAERS Safety Report 5959151-2 (Version None)
Quarter: 2008Q4

REPORT INFORMATION
  Report Type: 
  Country: None (occurrence: None)
  Receive Date: 20081120
  Receipt Date: 20080317
  Transmission Date: 20090506
  Serious: No
  Sender: FDA-Public Use
  Company Number: A0715815A

PATIENT
  Age: 51 Year
  Sex: Female

DRUGS (17)
  1. BUPROPION HYDROCHLORIDE [Suspect]
     Route: 048
  2. WELLBUTRIN XL [Suspect]
     Indication: DEPRESSION
     Dosage: 150MG PER DAY
     Route: 048
     Dates: start: 20080215, end: 20080307
  3. NORCO [Concomitant]
  4. LEXAPRO [Concomitant]
  5. DIAZEPAM [Concomitant]
  6. FLEXERIL [Concomitant]
  7. SOMA [Concomitant]
  8. REQUIP [Concomitant]
  9. LORATADINE [Concomitant]
  10. LISINOPRIL [Concomitant]
  11. POTASSIUM CHLORIDE [Concomitant]
  12. LASIX [Concomitant]
  13. CALTRATE [Concomitant]
  14. VITAMINS [Concomitant]
  15. ASCORBIC ACID [Concomitant]
  16. SUPER B COMPLEX [Concomitant]
  17. ALBUTEROL [Concomitant]

REACTIONS (2)
  - SOMNOLENCE [None]
  - THERAPEUTIC RESPONSE UNEXPECTED [None]
